FAERS Safety Report 5459805-0 (Version None)
Quarter: 2007Q3

REPORT INFORMATION
  Report Type: 
  Country: None (occurrence: None)
  Receive Date: 20070919
  Receipt Date: 20070917
  Transmission Date: 20080115
  Serious: Yes (Hospitalization)
  Sender: FDA-Public Use
  Company Number: US-BRISTOL-MYERS SQUIBB COMPANY-13887831

PATIENT
  Age: 61 Year
  Sex: Male

DRUGS (8)
  1. ERBITUX [Suspect]
     Indication: COLON CANCER METASTATIC
     Route: 042
     Dates: start: 20070815
  2. FLUOROURACIL [Concomitant]
     Dates: start: 20070808
  3. IRINOTECAN HCL [Concomitant]
     Dates: start: 20070808
  4. LEUCOVORIN CALCIUM [Concomitant]
  5. BENADRYL [Concomitant]
     Dosage: ALSO TAKEN ON  08/08/2007 .
     Dates: start: 20070815
  6. DEXAMETHASONE 0.5MG TAB [Concomitant]
     Dates: start: 20070808
  7. ANZEMET [Concomitant]
     Dates: start: 20070808
  8. ATROPINE [Concomitant]
     Dates: start: 20070808

REACTIONS (2)
  - HYPOTENSION [None]
  - RENAL FAILURE ACUTE [None]
